FAERS Safety Report 5570030-5 (Version None)
Quarter: 2007Q4

REPORT INFORMATION
  Report Type: 
  Country: None (occurrence: None)
  Receive Date: 20071220
  Receipt Date: 20071210
  Transmission Date: 20080405
  Serious: Yes (Hospitalization, Other)
  Sender: FDA-Public Use
  Company Number: FR-PFIZER INC-2007104561

PATIENT
  Sex: Female

DRUGS (1)
  1. XANAX [Suspect]

REACTIONS (1)
  - INTENTIONAL OVERDOSE [None]
